FAERS Safety Report 6157414-1 (Version None)
Quarter: 2009Q2

REPORT INFORMATION
  Report Type: 
  Country: None (occurrence: None)
  Receive Date: 20090416
  Receipt Date: 20090406
  Transmission Date: 20091009
  Serious: Yes (Hospitalization)
  Sender: FDA-Public Use
  Company Number: US-PFIZER INC-2009181455

PATIENT
  Age: 57 Year
  Sex: Female
  Weight: 87 kg

DRUGS (3)
  1. SUNITINIB MALATE [Suspect]
     Indication: OVARIAN CANCER
     Dosage: 12.5 MG, 1X/DAY
     Route: 048
     Dates: start: 20090106, end: 20090305
  2. SUNITINIB MALATE [Suspect]
     Dosage: 25 MG, 1X/DAY
     Route: 048
     Dates: start: 20090106, end: 20090305
  3. LISINOPRIL [Concomitant]
     Dosage: 5 MG, UNK
     Dates: start: 20090304

REACTIONS (1)
  - CEREBROVASCULAR ACCIDENT [None]
